FAERS Safety Report 20044222 (Version 2)
Quarter: 2021Q4

REPORT INFORMATION
  Report Type: Report from Study
  Country: IT (occurrence: IT)
  Receive Date: 20211108
  Receipt Date: 20211111
  Transmission Date: 20220303
  Serious: Yes (Other)
  Sender: FDA-Public Use
  Company Number: IT-PFM-2021-10803

PATIENT
  Age: 78 Year
  Sex: Female
  Weight: 63 kg

DRUGS (8)
  1. ENCORAFENIB [Suspect]
     Active Substance: ENCORAFENIB
     Indication: Colon cancer metastatic
     Dosage: 300 MG, QD (1/DAY)
     Route: 048
     Dates: start: 20210603, end: 20210622
  2. ENCORAFENIB [Suspect]
     Active Substance: ENCORAFENIB
     Dosage: 225 MG, QD (1/DAY)
     Route: 048
     Dates: start: 20210722
  3. ENCORAFENIB [Suspect]
     Active Substance: ENCORAFENIB
     Dosage: 75 MG, QD (1/DAY)
     Route: 048
     Dates: start: 20210812, end: 20210923
  4. CETUXIMAB [Suspect]
     Active Substance: CETUXIMAB
     Indication: Colon cancer metastatic
     Dosage: 392.5 MG, WEEKLY
     Route: 042
     Dates: start: 20210603, end: 20210923
  5. METFORMIN [Concomitant]
     Active Substance: METFORMIN HYDROCHLORIDE
     Indication: Diabetes mellitus
     Dosage: 500 MG, TID (3/DAY)
     Route: 048
     Dates: start: 20181205
  6. ASPIRIN [Concomitant]
     Active Substance: ASPIRIN
     Indication: Supra-aortic trunk stenosis
     Dosage: 100 MG, DAILY
     Route: 065
     Dates: start: 20200228
  7. PERINDOPRIL [Concomitant]
     Active Substance: PERINDOPRIL
     Indication: Hypertension
     Dosage: 4 MG, DAILY
     Route: 065
     Dates: start: 20181205
  8. LOYADA [Concomitant]
     Indication: Retinopathy
     Dosage: 1 DROP, DAILY
     Route: 065
     Dates: start: 20181205

REACTIONS (5)
  - Gravitational oedema [Not Recovered/Not Resolved]
  - Ejection fraction decreased [Not Recovered/Not Resolved]
  - Dyspnoea exertional [Recovering/Resolving]
  - Diarrhoea [Recovered/Resolved]
  - Asthenia [Recovering/Resolving]

NARRATIVE: CASE EVENT DATE: 20210722
